FAERS Safety Report 5576409-X (Version None)
Quarter: 2007Q4

REPORT INFORMATION
  Report Type: 
  Country: None (occurrence: None)
  Receive Date: 20071228
  Receipt Date: 20071218
  Transmission Date: 20080405
  Serious: Yes (Hospitalization)
  Sender: FDA-Public Use
  Company Number: US-BAYER-200716701NA

PATIENT
  Age: 55 Year
  Sex: Female

DRUGS (2)
  1. BETASERON [Suspect]
     Indication: MULTIPLE SCLEROSIS
     Dosage: AS USED: 2` MIU
     Route: 058
     Dates: start: 20071101
  2. BETASERON [Suspect]
     Dosage: TOTAL DAILY DOSE: 8 MIU
     Route: 058

REACTIONS (6)
  - ASTHENIA [None]
  - BLOOD PRESSURE ABNORMAL [None]
  - GAIT DISTURBANCE [None]
  - HAEMATEMESIS [None]
  - HYPERHIDROSIS [None]
  - KIDNEY INFECTION [None]
